FAERS Safety Report 8063016-2 (Version None)
Quarter: 2012Q1

REPORT INFORMATION
  Report Type: 
  Country: None (occurrence: None)
  Receive Date: 20120123
  Receipt Date: 20120116
  Transmission Date: 20120608
  Serious: Yes (Hospitalization, Other)
  Sender: FDA-Public Use
  Company Number: FR-PFIZER INC-2012011549

PATIENT
  Age: 50 Year
  Sex: Female

DRUGS (7)
  1. ALKERAN [Suspect]
     Dosage: UNK
     Route: 042
     Dates: start: 20111024, end: 20111024
  2. BENDAMUSTINE [Suspect]
     Dosage: 120 MG/M2
     Dates: start: 20110818, end: 20111019
  3. OXYCONTIN [Suspect]
     Dosage: UNK
     Route: 048
  4. VALACYCLOVIR HYDROCHLORIDE [Suspect]
     Dosage: UNK
  5. ZOLOFT [Suspect]
     Dosage: UNK
  6. XANAX [Suspect]
     Dosage: UNK
  7. VELCADE [Suspect]
     Dosage: UNK
     Route: 042
     Dates: start: 20110214, end: 20110726

REACTIONS (7)
  - ENTEROCOLITIS INFECTIOUS [None]
  - CYTOLYTIC HEPATITIS [None]
  - PNEUMONIA STREPTOCOCCAL [None]
  - PAIN IN EXTREMITY [None]
  - CHOLESTASIS [None]
  - BONE MARROW FAILURE [None]
  - MULTIPLE MYELOMA [None]
